FAERS Safety Report 11230587 (Version 1)
Quarter: 2015Q2

REPORT INFORMATION
  Report Type: Spontaneous
  Country: US (occurrence: None)
  Receive Date: 20150629
  Receipt Date: 20150629
  Transmission Date: 20150821
  Serious: Yes (Death)
  Sender: FDA-Public Use
  Company Number: LIT-15-0018

PATIENT
  Age: 30 Year
  Sex: Female

DRUGS (1)
  1. DIVALPROEX SODIUM. [Suspect]
     Active Substance: DIVALPROEX SODIUM
     Indication: BIPOLAR DISORDER

REACTIONS (5)
  - Ovarian neoplasm [None]
  - Pulmonary embolism [None]
  - Pulse absent [None]
  - Unresponsive to stimuli [None]
  - Respiratory arrest [None]

NARRATIVE: CASE EVENT DATE: 20130805
